FAERS Safety Report 5119947-6 (Version None)
Quarter: 2006Q3

REPORT INFORMATION
  Report Type: 
  Country: None (occurrence: None)
  Receive Date: 20060928
  Receipt Date: 20060926
  Transmission Date: 20061208
  Serious: Yes (Hospitalization)
  Sender: FDA-Public Use
  Company Number: HQWYE184226SEP06

PATIENT
  Age: 79 Year
  Sex: Female

DRUGS (2)
  1. CORDARONE [Suspect]
     Indication: ATRIAL FIBRILLATION
     Dosage: 200 MG 5X PER 1 WEEK ORAL
     Route: 048
     Dates: start: 20040615, end: 20060719
  2. CORDARONE [Suspect]
     Indication: ATRIAL FLUTTER
     Dosage: 200 MG 5X PER 1 WEEK ORAL
     Route: 048
     Dates: start: 20040615, end: 20060719

REACTIONS (6)
  - ACUTE PULMONARY OEDEMA [None]
  - ACUTE RESPIRATORY DISTRESS SYNDROME [None]
  - HAEMOPHILUS INFECTION [None]
  - HYPERTHYROIDISM [None]
  - HYPOXIA [None]
  - LUNG DISORDER [None]
